FAERS Safety Report 23573350 (Version 3)
Quarter: 2024Q1

REPORT INFORMATION
  Report Type: Spontaneous
  Country: JP (occurrence: JP)
  Receive Date: 20240228
  Receipt Date: 20240313
  Transmission Date: 20240410
  Serious: Yes (Other)
  Sender: FDA-Public Use
  Company Number: JP-BRISTOL-MYERS SQUIBB COMPANY-2024-024742

PATIENT

DRUGS (1)
  1. ORENCIA [Suspect]
     Active Substance: ABATACEPT
     Indication: Product used for unknown indication
     Route: 058

REACTIONS (4)
  - Device operational issue [Unknown]
  - Device delivery system issue [Unknown]
  - Wrong technique in device usage process [Unknown]
  - Device safety feature issue [Unknown]

NARRATIVE: CASE EVENT DATE: 20240209
